FAERS Safety Report 5572957-7 (Version None)
Quarter: 2007Q4

REPORT INFORMATION
  Report Type: 
  Country: None (occurrence: None)
  Receive Date: 20071219
  Receipt Date: 20071219
  Transmission Date: 20080405
  Serious: No
  Sender: FDA-Public Use
  Company Number: None

PATIENT
  Age: 16 Year
  Sex: Male
  Weight: 85.7298 kg

DRUGS (4)
  1. LOPERAMIDE HCL [Suspect]
     Dosage: 2MG  PO
     Route: 048
  2. DEPAKOTE ER [Concomitant]
  3. RISPERDAL [Concomitant]
  4. NICOTINE [Concomitant]

REACTIONS (1)
  - RASH [None]
